FAERS Safety Report 9278623 (Version 1)
Quarter: 2012Q4

REPORT INFORMATION
  Report Type: Spontaneous
  Country: JP (occurrence: None)
  Receive Date: 20121109
  Receipt Date: 20121109
  Transmission Date: 20130627
  Serious: Yes (Other)
  Sender: FDA-Public Use
  Company Number: 2012S1000720

PATIENT
  Age: 82 Year
  Sex: Male

DRUGS (3)
  1. CUBICIN [Suspect]
     Indication: DRUG USE FOR UNKNOWN INDICATION
     Dosage: ; UNK; IV
     Route: 042
  2. AMINOGLYCOSIDE ANTIBIOTICS [Concomitant]
  3. ANTIBIOTICS [Concomitant]

REACTIONS (1)
  - Hypoacusis [None]
